FAERS Safety Report 13256536 (Version 1)
Quarter: 2017Q1

REPORT INFORMATION
  Report Type: Spontaneous
  Country: US (occurrence: US)
  Receive Date: 20170220
  Receipt Date: 20170220
  Transmission Date: 20170428
  Serious: Yes (Other)
  Sender: FDA-Public Use
  Company Number: None

PATIENT
  Age: 37 Year
  Sex: Female
  Weight: 63 kg

DRUGS (6)
  1. TOPROL XL [Concomitant]
     Active Substance: METOPROLOL SUCCINATE
  2. ALIVE VITAMINS [Concomitant]
  3. ADVIL [Concomitant]
     Active Substance: IBUPROFEN
  4. ESTROGENS [Concomitant]
     Active Substance: ESTROGENS
  5. OCEAN SALINE NASAL SPRAY [Concomitant]
     Active Substance: SODIUM CHLORIDE
  6. MICONAZOLE. [Suspect]
     Active Substance: MICONAZOLE
     Indication: FUNGAL INFECTION
     Dosage: AT BEDTIME
     Route: 067
     Dates: start: 20170218, end: 20170218

REACTIONS (3)
  - Vulval disorder [None]
  - Vulvovaginal swelling [None]
  - Pain [None]

NARRATIVE: CASE EVENT DATE: 20170218
